FAERS Safety Report 16789250 (Version 1)
Quarter: 2019Q3

REPORT INFORMATION
  Report Type: Spontaneous
  Country: US (occurrence: US)
  Receive Date: 20190910
  Receipt Date: 20190910
  Transmission Date: 20191005
  Serious: No
  Sender: FDA-Public Use
  Company Number: US-JNJFOC-20190908166

PATIENT
  Sex: Male
  Weight: 95.34 kg

DRUGS (1)
  1. TYLENOL [Suspect]
     Active Substance: ACETAMINOPHEN
     Indication: PAIN IN EXTREMITY
     Dosage: 2 CAPLET EVERY 6 HOURS DAILY
     Route: 048

REACTIONS (1)
  - Therapeutic product effect variable [Unknown]
